FAERS Safety Report 7240071-0 (Version None)
Quarter: 2011Q1

REPORT INFORMATION
  Report Type: 
  Country: None (occurrence: None)
  Receive Date: 20110124
  Receipt Date: 20110119
  Transmission Date: 20110831
  Serious: No
  Sender: FDA-Public Use
  Company Number: US-BIOGENIDEC-2011BI002257

PATIENT
  Age: 47 Year
  Sex: Female

DRUGS (3)
  1. AVONEX [Suspect]
     Indication: MULTIPLE SCLEROSIS
     Route: 030
     Dates: start: 20030101
  2. AVONEX [Suspect]
     Route: 030
     Dates: start: 19991201, end: 20030101
  3. AVONEX [Suspect]
     Route: 030
     Dates: start: 20030101, end: 20030101

REACTIONS (6)
  - FATIGUE [None]
  - ARTERIOSCLEROSIS [None]
  - MULTIPLE SCLEROSIS RELAPSE [None]
  - BLOOD CHOLESTEROL INCREASED [None]
  - ANXIETY [None]
  - INFLUENZA LIKE ILLNESS [None]
